FAERS Safety Report 5680527-5 (Version None)
Quarter: 2008Q1

REPORT INFORMATION
  Report Type: 
  Country: None (occurrence: None)
  Receive Date: 20080326
  Receipt Date: 20080318
  Transmission Date: 20080703
  Serious: Yes (Other)
  Sender: FDA-Public Use
  Company Number: GB-ASTRAZENECA-2008GB00533

PATIENT
  Age: 54 Year
  Sex: Male
  Weight: 76 kg

DRUGS (5)
  1. OMEPRAZOLE [Suspect]
     Route: 048
     Dates: start: 20070301
  2. OMEPRAZOLE [Suspect]
     Dosage: DOSE DOUBLED
     Route: 048
     Dates: end: 20080211
  3. BECLOMETHASONE DIPROPIONATE [Concomitant]
     Route: 055
  4. FINASTERIDE [Concomitant]
     Route: 048
     Dates: start: 20061201
  5. SALBUTAMOL [Concomitant]
     Route: 055

REACTIONS (2)
  - ALOPECIA [None]
  - MADAROSIS [None]
